FAERS Safety Report 16979120 (Version 22)
Quarter: 2021Q1

REPORT INFORMATION
  Report Type: Report from Study
  Country: CA (occurrence: CA)
  Receive Date: 20191031
  Receipt Date: 20210326
  Transmission Date: 20210419
  Serious: Yes (Hospitalization, Disabling)
  Sender: FDA-Public Use
  Company Number: CA-IPSEN BIOPHARMACEUTICALS, INC.-2019-19644

PATIENT
  Age: 52 Year
  Sex: Male
  Weight: 90.71 kg

DRUGS (3)
  1. PERINDOPRIL [Concomitant]
     Active Substance: PERINDOPRIL
     Indication: HYPERTENSION
  2. LOVENOX [Concomitant]
     Active Substance: ENOXAPARIN SODIUM
     Route: 058
     Dates: start: 20200829, end: 2020
  3. SOMATULINE AUTOGEL [Suspect]
     Active Substance: LANREOTIDE ACETATE
     Indication: NEUROENDOCRINE TUMOUR
     Dosage: CUMULATIVE DOSE : 960 MG (TILL 12?APR?2020) ON 10?MAY?2020, CUMULATIVE DOSE WAS 1080 MG
     Route: 058
     Dates: start: 20190930

REACTIONS (23)
  - Discomfort [Recovering/Resolving]
  - Frequent bowel movements [Recovering/Resolving]
  - Feeling abnormal [Recovering/Resolving]
  - Flushing [Recovered/Resolved]
  - Abdominal discomfort [Recovered/Resolved]
  - Chest discomfort [Recovering/Resolving]
  - Body temperature increased [Recovered/Resolved]
  - Product dose omission issue [Unknown]
  - Sensitive skin [Recovered/Resolved]
  - Muscle tightness [Recovered/Resolved]
  - Body temperature increased [Recovering/Resolving]
  - Device use issue [Unknown]
  - Diarrhoea [Recovered/Resolved]
  - Injection site haemorrhage [Recovered/Resolved]
  - Emotional distress [Not Recovered/Not Resolved]
  - Injection site haemorrhage [Recovered/Resolved]
  - Abdominal discomfort [Recovered/Resolved]
  - Tumour excision [Unknown]
  - Incision site complication [Recovered/Resolved]
  - Injection site pain [Recovered/Resolved]
  - Abdominal pain [Recovered/Resolved]
  - Small intestinal obstruction [Recovering/Resolving]
  - Heart rate increased [Recovered/Resolved]

NARRATIVE: CASE EVENT DATE: 201910
